FAERS Safety Report 10367654 (Version 1)
Quarter: 2014Q3

REPORT INFORMATION
  Report Type: Report from Study
  Country: US (occurrence: US)
  Receive Date: 20140807
  Receipt Date: 20140807
  Transmission Date: 20150326
  Serious: Yes (Other)
  Sender: FDA-Public Use
  Company Number: US-BAYER-2014-116344

PATIENT
  Sex: Female

DRUGS (1)
  1. MIRENA [Suspect]
     Active Substance: LEVONORGESTREL
     Dosage: 20 MCG/24HR, CONT
     Route: 015
     Dates: start: 2012

REACTIONS (9)
  - Adnexa uteri mass [None]
  - Abdominal distension [None]
  - Urinary tract infection [None]
  - Nausea [None]
  - Back pain [None]
  - Fatigue [None]
  - Abdominal pain [None]
  - Pollakiuria [None]
  - Irritability [None]
